FAERS Safety Report 10532439 (Version 1)
Quarter: 2014Q4

REPORT INFORMATION
  Report Type: Spontaneous
  Country: US (occurrence: US)
  Receive Date: 20141021
  Receipt Date: 20141021
  Transmission Date: 20150529
  Serious: No
  Sender: FDA-Public Use
  Company Number: US-PURDUE-USA-2014-0116377

PATIENT
  Sex: Female

DRUGS (1)
  1. OXYCONTIN [Suspect]
     Active Substance: OXYCODONE HYDROCHLORIDE
     Indication: PRODUCT USED FOR UNKNOWN INDICATION
     Dosage: 30 MG, TID
     Route: 048
     Dates: start: 2012

REACTIONS (7)
  - Thyroid disorder [Unknown]
  - Retching [Unknown]
  - Hypophagia [Unknown]
  - Constipation [Unknown]
  - Vitamin D decreased [Unknown]
  - Weight decreased [Unknown]
  - Nausea [Unknown]
